FAERS Safety Report 9863152 (Version 1)
Quarter: 2014Q1

REPORT INFORMATION
  Report Type: Spontaneous
  Country: PH (occurrence: PH)
  Receive Date: 20140203
  Receipt Date: 20140203
  Transmission Date: 20141002
  Serious: Yes (Disabling)
  Sender: FDA-Public Use
  Company Number: PH-009507513-1401PHL014420

PATIENT
  Age: 47 Year
  Sex: Female

DRUGS (2)
  1. JANUMET [Suspect]
     Dosage: 1 DF, BID(TOTAL DAILY DOSE: 100/2000 MILLIGRAM)
     Route: 048
     Dates: start: 201312
  2. METFORMIN [Concomitant]

REACTIONS (3)
  - Decreased appetite [Not Recovered/Not Resolved]
  - Vomiting [Not Recovered/Not Resolved]
  - Headache [Recovered/Resolved]
